FAERS Safety Report 25677692 (Version 1)
Quarter: 2025Q3

REPORT INFORMATION
  Report Type: Spontaneous
  Country: US (occurrence: US)
  Receive Date: 20250813
  Receipt Date: 20250813
  Transmission Date: 20251021
  Serious: No
  Sender: TEIKOKU
  Company Number: US-TPU-TPU-2025-00371

PATIENT
  Sex: Male
  Weight: 80.29 kg

DRUGS (1)
  1. LIDOCAINE PATCH [Suspect]
     Active Substance: LIDOCAINE
     Indication: Pain in extremity
     Dates: start: 20250725

REACTIONS (1)
  - Drug ineffective for unapproved indication [Unknown]
